FAERS Safety Report 26070449 (Version 2)
Quarter: 2025Q4

REPORT INFORMATION
  Report Type: Spontaneous
  Country: EU (occurrence: EU)
  Receive Date: 20251120
  Receipt Date: 20251202
  Transmission Date: 20260118
  Serious: Yes (Other)
  Sender: INCYTE
  Company Number: EU-002147023-NVSC2025FR177478

PATIENT
  Age: 56 Year

DRUGS (2)
  1. RUXOLITINIB [Suspect]
     Active Substance: RUXOLITINIB
     Indication: Graft versus host disease
     Dosage: 5 MG, QD
     Route: 065
  2. CYCLOSPORINE [Concomitant]
     Active Substance: CYCLOSPORINE
     Indication: Graft versus host disease
     Dosage: 60 MG, QD
     Route: 065

REACTIONS (3)
  - Dermatitis acneiform [Unknown]
  - Cytopenia [Unknown]
  - Scar [Unknown]
